FAERS Safety Report 7942681-1 (Version None)
Quarter: 2011Q4

REPORT INFORMATION
  Report Type: 
  Country: None (occurrence: None)
  Receive Date: 20111128
  Receipt Date: 20111115
  Transmission Date: 20120403
  Serious: No
  Sender: FDA-Public Use
  Company Number: US-B.I. PHARMACEUTICALS,INC./RIDGEFIELD-2011-BP-26303BP

PATIENT
  Sex: Male

DRUGS (2)
  1. ATACAND [Concomitant]
     Indication: HYPERTENSION
     Route: 048
  2. PRADAXA [Suspect]

REACTIONS (1)
  - HYPOTENSION [None]
